FAERS Safety Report 14880096 (Version 1)
Quarter: 2018Q2

REPORT INFORMATION
  Report Type: Spontaneous
  Country: US (occurrence: US)
  Receive Date: 20180425
  Receipt Date: 20180425
  Transmission Date: 20180711
  Serious: Yes (Other)
  Sender: FDA-Public Use
  Company Number: None

PATIENT
  Age: 58 Year
  Sex: Female
  Weight: 91.17 kg

DRUGS (12)
  1. HUMALOG [Concomitant]
     Active Substance: INSULIN LISPRO
  2. QVAR [Concomitant]
     Active Substance: BECLOMETHASONE DIPROPIONATE
  3. ALPRAZOLAM. [Concomitant]
     Active Substance: ALPRAZOLAM
  4. TELMISARTAN. [Concomitant]
     Active Substance: TELMISARTAN
  5. ATORVASTATIN [Concomitant]
     Active Substance: ATORVASTATIN
  6. HYDROCHLOROTHIAZIDE. [Concomitant]
     Active Substance: HYDROCHLOROTHIAZIDE
  7. LANTUS [Concomitant]
     Active Substance: INSULIN GLARGINE
  8. BASAGLAR [Suspect]
     Active Substance: INSULIN GLARGINE
     Indication: DIABETES MELLITUS MANAGEMENT
     Dosage: 60 UNITS  2X DAILY; SUBCUTANEOUS?
     Route: 058
     Dates: start: 20180210, end: 20180328
  9. MONTELUKAST [Concomitant]
     Active Substance: MONTELUKAST SODIUM
  10. IBUPROFIN [Concomitant]
     Active Substance: IBUPROFEN
  11. VENTOLIN [Concomitant]
     Active Substance: ALBUTEROL SULFATE
  12. SEREVENT DISKUS [Concomitant]
     Active Substance: SALMETEROL XINAFOATE

REACTIONS (9)
  - Blood glucose increased [None]
  - Insomnia [None]
  - Rash [None]
  - Night sweats [None]
  - Injection site swelling [None]
  - Hunger [None]
  - Drug effect decreased [None]
  - Thirst [None]
  - Headache [None]

NARRATIVE: CASE EVENT DATE: 20180227
